FAERS Safety Report 9514029 (Version 4)
Quarter: 2014Q1

REPORT INFORMATION
  Report Type: Spontaneous
  Country: US (occurrence: US)
  Receive Date: 20130910
  Receipt Date: 20140217
  Transmission Date: 20141002
  Serious: Yes (Other)
  Sender: FDA-Public Use
  Company Number: US-PFIZER INC-2013258753

PATIENT
  Sex: Female

DRUGS (4)
  1. EFFEXOR [Suspect]
     Dosage: UNK
     Dates: end: 201309
  2. EFFEXOR XR [Suspect]
     Dosage: 150 MG, UNK
  3. CADUET [Suspect]
     Dosage: AMLODIPINE BESILATE 10MG / ATORVASTATIN CALCIUM 40MG, UNK
  4. NEURONTIN [Suspect]
     Dosage: 300 MG, UNK

REACTIONS (3)
  - Suicidal ideation [Recovered/Resolved]
  - Intentional self-injury [Recovered/Resolved]
  - Visual acuity reduced [Recovered/Resolved]
